FAERS Safety Report 6115430-X (Version None)
Quarter: 2009Q1

REPORT INFORMATION
  Report Type: 
  Country: None (occurrence: None)
  Receive Date: 20090313
  Receipt Date: 20090305
  Transmission Date: 20090719
  Serious: Yes (Hospitalization)
  Sender: FDA-Public Use
  Company Number: FR-AVENTIS-200910921FR

PATIENT
  Age: 56 Year
  Sex: Male

DRUGS (5)
  1. BIPROFENID [Suspect]
     Route: 048
     Dates: end: 20081204
  2. SOLUPRED                           /00016201/ [Suspect]
     Route: 048
  3. LOVENOX [Suspect]
     Indication: PROPHYLAXIS
     Route: 058
     Dates: end: 20081204
  4. MOPRAL [Concomitant]
     Indication: PROPHYLAXIS
     Route: 048
  5. ERYTHROPOIETIN HUMAN [Concomitant]
     Dates: end: 20081204

REACTIONS (3)
  - ANAEMIA [None]
  - GASTRIC ULCER [None]
  - HAEMATEMESIS [None]
